FAERS Safety Report 8507733 (Version 5)
Quarter: 2012Q4

REPORT INFORMATION
  Report Type: 
  Country: US (occurrence: US)
  Receive Date: 20120412
  Receipt Date: 20121228
  Transmission Date: 20130627
  Serious: No
  Sender: FDA-Public Use
  Company Number: US-ASTRAZENECA-2012SE02817

PATIENT
  Age: 54 Year
  Sex: Female

DRUGS (2)
  1. NEXIUM [Suspect]
     Route: 048
  2. NEXIUM [Suspect]
     Route: 048

REACTIONS (13)
  - Dyspepsia [Unknown]
  - Gastric disorder [Unknown]
  - Dyspepsia [Unknown]
  - Dysphagia [Unknown]
  - Ulcer [Unknown]
  - Condition aggravated [Unknown]
  - Regurgitation [Unknown]
  - Malaise [Unknown]
  - Vomiting [Unknown]
  - Retching [Unknown]
  - Off label use [Unknown]
  - Drug dose omission [Unknown]
  - Drug ineffective [Unknown]
